FAERS Safety Report 6906746-5 (Version None)
Quarter: 2010Q3

REPORT INFORMATION
  Report Type: 
  Country: None (occurrence: None)
  Receive Date: 20100804
  Receipt Date: 20100728
  Transmission Date: 20110219
  Serious: Yes (Other)
  Sender: FDA-Public Use
  Company Number: US-TEVA-243083USA

PATIENT
  Sex: Female

DRUGS (4)
  1. TOPIRAMATE [Suspect]
     Indication: CONVULSION
     Route: 048
     Dates: start: 20100301
  2. TOPIRAMATE [Suspect]
     Route: 048
  3. TOPIRAMATE [Suspect]
     Dosage: 50 MG Q AM AND 25 MG IN AFTERNOON
     Route: 048
  4. TOPIRAMATE [Suspect]
     Route: 048
     Dates: start: 20100401

REACTIONS (1)
  - CEREBROVASCULAR ACCIDENT [None]
